FAERS Safety Report 7433557-7 (Version None)
Quarter: 2011Q2

REPORT INFORMATION
  Report Type: 
  Country: None (occurrence: None)
  Receive Date: 20110422
  Receipt Date: 20110411
  Transmission Date: 20111010
  Serious: Yes (Other)
  Sender: FDA-Public Use
  Company Number: JP-WATSON-2011-05539

PATIENT
  Age: 37 Year
  Sex: Male

DRUGS (2)
  1. METHYLPREDNISOLONE ACETATE [Suspect]
     Indication: POLYSEROSITIS
     Dosage: 0.5 G, PULSE THERAPY
     Route: 065
  2. METHYLPREDNISOLONE ACETATE [Suspect]
     Indication: GRAFT VERSUS HOST DISEASE

REACTIONS (1)
  - THROMBOTIC MICROANGIOPATHY [None]
